FAERS Safety Report 22348754 (Version 2)
Quarter: 2023Q2

REPORT INFORMATION
  Report Type: Spontaneous
  Country: US (occurrence: US)
  Receive Date: 20230522
  Receipt Date: 20230619
  Transmission Date: 20230722
  Serious: Yes (Other)
  Sender: FDA-Public Use
  Company Number: US-ORGANON-O2305USA001581

PATIENT
  Sex: Female
  Weight: 88.571 kg

DRUGS (2)
  1. NEXPLANON [Suspect]
     Active Substance: ETONOGESTREL
     Indication: Contraception
     Dosage: 1 IMPLANT OF 68 MG IN RIGHT ARM
     Dates: start: 2014
  2. VITAMINS NOS [Concomitant]
     Active Substance: VITAMINS
     Dosage: 0.8 MILLIGRAM, QD

REACTIONS (12)
  - Pregnancy with implant contraceptive [Recovered/Resolved]
  - Unintended pregnancy [Recovered/Resolved]
  - Iron deficiency anaemia [Unknown]
  - Implant site scar [Recovered/Resolved]
  - Implant site pain [Unknown]
  - Device issue [Not Recovered/Not Resolved]
  - Complication associated with device [Recovered/Resolved]
  - Complication of device removal [Recovered/Resolved]
  - Complication associated with device [Unknown]
  - Complication of device removal [Not Recovered/Not Resolved]
  - Incorrect product administration duration [Unknown]
  - Product prescribing issue [Unknown]

NARRATIVE: CASE EVENT DATE: 20170101
